FAERS Safety Report 14603432 (Version 1)
Quarter: 2018Q1

REPORT INFORMATION
  Report Type: Spontaneous
  Country: US (occurrence: US)
  Receive Date: 20180305
  Receipt Date: 20180305
  Transmission Date: 20180509
  Serious: Yes (Other)
  Sender: FDA-Public Use
  Company Number: None

PATIENT
  Age: 52 Year
  Sex: Male
  Weight: 117.45 kg

DRUGS (16)
  1. LANTUS [Suspect]
     Active Substance: INSULIN GLARGINE
     Indication: TYPE 2 DIABETES MELLITUS
     Route: 058
     Dates: start: 20170501, end: 20180226
  2. AMARYL 1MG [Concomitant]
  3. PROTONIX [Concomitant]
     Active Substance: PANTOPRAZOLE SODIUM
  4. JARDIANCE [Concomitant]
     Active Substance: EMPAGLIFLOZIN
  5. ASPIRIN 81MG [Concomitant]
     Active Substance: ASPIRIN
  6. FOLIC ACID. [Concomitant]
     Active Substance: FOLIC ACID
  7. TOUJEO [Suspect]
     Active Substance: INSULIN GLARGINE
     Indication: TYPE 2 DIABETES MELLITUS
     Route: 058
     Dates: start: 20180201, end: 20180226
  8. MIRTAZIPINE 30MG [Concomitant]
  9. PLAVIX [Concomitant]
     Active Substance: CLOPIDOGREL BISULFATE
  10. NITROGLYERIN 0.4MG [Concomitant]
  11. GABAPENTIN 300MG [Concomitant]
     Active Substance: GABAPENTIN
  12. TOPROL XL 50MG [Concomitant]
  13. SYMBICORT [Concomitant]
     Active Substance: BUDESONIDE\FORMOTEROL FUMARATE DIHYDRATE
  14. CRESTOR 40MG [Concomitant]
  15. SPIRIVA [Concomitant]
     Active Substance: TIOTROPIUM BROMIDE MONOHYDRATE
  16. VITAMIN B12 [Concomitant]
     Active Substance: CYANOCOBALAMIN

REACTIONS (3)
  - Product substitution issue [None]
  - Ear pruritus [None]
  - Pruritus [None]

NARRATIVE: CASE EVENT DATE: 20180226
